FAERS Safety Report 5151585-1 (Version None)
Quarter: 2006Q4

REPORT INFORMATION
  Report Type: 
  Country: None (occurrence: None)
  Receive Date: 20061115
  Receipt Date: 20050921
  Transmission Date: 20070319
  Serious: Yes (Other)
  Sender: FDA-Public Use
  Company Number: US-BRISTOL-MYERS SQUIBB COMPANY-13118070

PATIENT
  Sex: Male

DRUGS (1)
  1. SUSTIVA [Suspect]
     Indication: HIV INFECTION

REACTIONS (1)
  - AGGRESSION [None]
